FAERS Safety Report 9551440 (Version 1)
Quarter: 2013Q3

REPORT INFORMATION
  Report Type: Spontaneous
  Country: US (occurrence: None)
  Receive Date: 20130923
  Receipt Date: 20130923
  Transmission Date: 20140515
  Serious: No
  Sender: FDA-Public Use
  Company Number: None

PATIENT
  Age: 76 Year
  Sex: Male
  Weight: 88.5 kg

DRUGS (1)
  1. RIVAROXABAN [Suspect]
     Dosage: 20 MG PM PO
     Route: 048
     Dates: start: 20130403, end: 20130424

REACTIONS (1)
  - Rash [None]
